FAERS Safety Report 13651291 (Version 1)
Quarter: 2017Q2

REPORT INFORMATION
  Report Type: Spontaneous
  Country: US (occurrence: US)
  Receive Date: 20170614
  Receipt Date: 20170614
  Transmission Date: 20170830
  Serious: No
  Sender: FDA-Public Use
  Company Number: US-GLAXOSMITHKLINE-US2017089530

PATIENT
  Age: 90 Year
  Sex: Male

DRUGS (1)
  1. VOLTAREN [Suspect]
     Active Substance: DICLOFENAC SODIUM
     Indication: ARTHRALGIA
     Dosage: 2 G, UNK
     Dates: start: 20170607

REACTIONS (3)
  - Incorrect dosage administered [Unknown]
  - Drug effective for unapproved indication [Unknown]
  - Off label use [Unknown]
